FAERS Safety Report 24328394 (Version 1)
Quarter: 2024Q3

REPORT INFORMATION
  Report Type: Spontaneous
  Country: US (occurrence: US)
  Receive Date: 20240917
  Receipt Date: 20240917
  Transmission Date: 20241017
  Serious: No
  Sender: PFIZER
  Company Number: US-PFIZER INC-PV202400121281

PATIENT
  Age: 63 Year
  Sex: Female

DRUGS (2)
  1. RIFABUTIN [Suspect]
     Active Substance: RIFABUTIN
     Dosage: UNK
  2. RIFAMPIN [Suspect]
     Active Substance: RIFAMPIN
     Dosage: UNK

REACTIONS (2)
  - Gastrointestinal disorder [Unknown]
  - Liver function test increased [Unknown]
